FAERS Safety Report 10952584 (Version 1)
Quarter: 2015Q1

REPORT INFORMATION
  Report Type: Spontaneous
  Country: FR (occurrence: FR)
  Receive Date: 20150325
  Receipt Date: 20150325
  Transmission Date: 20150721
  Serious: Yes (Other)
  Sender: FDA-Public Use
  Company Number: FR-JNJFOC-20150308580

PATIENT
  Age: 41 Year
  Sex: Female

DRUGS (1)
  1. XEPLION [Suspect]
     Active Substance: PALIPERIDONE PALMITATE
     Indication: PRODUCT USED FOR UNKNOWN INDICATION
     Route: 030
     Dates: start: 20140603, end: 201502

REACTIONS (5)
  - Injection site abscess [Recovered/Resolved]
  - Bronchitis [Recovered/Resolved]
  - Injection site nodule [Unknown]
  - Agitation [Unknown]
  - Injection site pain [Unknown]

NARRATIVE: CASE EVENT DATE: 20140603
